FAERS Safety Report 8296147-2 (Version None)
Quarter: 2012Q2

REPORT INFORMATION
  Report Type: 
  Country: None (occurrence: None)
  Receive Date: 20120418
  Receipt Date: 20120411
  Transmission Date: 20120825
  Serious: Yes (Hospitalization)
  Sender: FDA-Public Use
  Company Number: FR-GLAXOSMITHKLINE-B0794689A

PATIENT
  Sex: Male

DRUGS (8)
  1. AVODART [Suspect]
     Indication: PROSTATIC ADENOMA
     Dosage: .5MG PER DAY
     Route: 048
     Dates: start: 20090101, end: 20120315
  2. LORAZEPAM [Suspect]
     Indication: ANXIETY
     Dosage: 1.5TAB PER DAY
     Route: 048
     Dates: end: 20120315
  3. ASPIRIN [Concomitant]
     Dosage: 160MG PER DAY
     Route: 048
  4. PROPRANOLOL [Concomitant]
     Dosage: 40MG THREE TIMES PER DAY
     Route: 048
  5. RAMIPRIL [Concomitant]
     Dosage: 5MG PER DAY
     Route: 048
  6. PRAVASTATIN [Suspect]
     Indication: HYPERCHOLESTEROLAEMIA
     Dosage: 40MG TWICE PER DAY
     Route: 048
     Dates: end: 20120315
  7. ALLOPURINOL [Suspect]
     Indication: GOUT
     Dosage: 100MG PER DAY
     Route: 048
     Dates: end: 20120315
  8. PANTOPRAZOLE SODIUM [Concomitant]
     Dosage: 20MG PER DAY
     Route: 048

REACTIONS (2)
  - URTICARIA [None]
  - THROMBOCYTOPENIA [None]
